FAERS Safety Report 11695942 (Version 1)
Quarter: 2015Q4

REPORT INFORMATION
  Report Type: Spontaneous
  Country: US (occurrence: None)
  Receive Date: 20151103
  Receipt Date: 20151103
  Transmission Date: 20160304
  Serious: Yes (Life-Threatening, Hospitalization, Disabling)
  Sender: FDA-Public Use
  Company Number: None

PATIENT
  Age: 35 Year
  Sex: Female
  Weight: 99.79 kg

DRUGS (29)
  1. ALEVE [Concomitant]
     Active Substance: NAPROXEN SODIUM
  2. ROPINIROLE. [Concomitant]
     Active Substance: ROPINIROLE
  3. JANUVIA [Concomitant]
     Active Substance: SITAGLIPTIN PHOSPHATE
  4. FENOFIBRATE. [Concomitant]
     Active Substance: FENOFIBRATE
  5. FENTANYL. [Concomitant]
     Active Substance: FENTANYL
  6. KLONOPIN [Concomitant]
     Active Substance: CLONAZEPAM
  7. ABILIFY [Suspect]
     Active Substance: ARIPIPRAZOLE
     Indication: PANIC DISORDER
     Route: 048
  8. GLIPIZIDE XL [Concomitant]
     Active Substance: GLIPIZIDE
  9. BUPROPION SR [Concomitant]
     Active Substance: BUPROPION
  10. METFORMIN [Concomitant]
     Active Substance: METFORMIN HYDROCHLORIDE
  11. LEVOCETIRIZINE [Concomitant]
     Active Substance: LEVOCETIRIZINE
  12. ZOLPIDEM [Concomitant]
     Active Substance: ZOLPIDEM\ZOLPIDEM TARTRATE
  13. IBUPROFEN. [Concomitant]
     Active Substance: IBUPROFEN
  14. LOSARTAN. [Concomitant]
     Active Substance: LOSARTAN
  15. PRAVASTATIN [Concomitant]
     Active Substance: PRAVASTATIN\PRAVASTATIN SODIUM
  16. ADVAIR HFA [Concomitant]
     Active Substance: FLUTICASONE PROPIONATE\SALMETEROL XINAFOATE
  17. ZOFRAN [Concomitant]
     Active Substance: ONDANSETRON HYDROCHLORIDE
  18. OXYCONTIN [Concomitant]
     Active Substance: OXYCODONE HYDROCHLORIDE
  19. BENADRYL [Concomitant]
     Active Substance: DIPHENHYDRAMINE HYDROCHLORIDE
  20. GABAPENTIN. [Concomitant]
     Active Substance: GABAPENTIN
  21. BENADRYL [Concomitant]
     Active Substance: DIPHENHYDRAMINE HYDROCHLORIDE
  22. ABILIFY [Suspect]
     Active Substance: ARIPIPRAZOLE
     Indication: BIPOLAR I DISORDER
     Route: 048
  23. ABILIFY [Suspect]
     Active Substance: ARIPIPRAZOLE
     Indication: GENERALISED ANXIETY DISORDER
     Route: 048
  24. ZOLOFT [Concomitant]
     Active Substance: SERTRALINE HYDROCHLORIDE
  25. OMEPRAZOLE. [Concomitant]
     Active Substance: OMEPRAZOLE
  26. VENTOLIN HFA [Concomitant]
     Active Substance: ALBUTEROL SULFATE
  27. FLONASE [Concomitant]
     Active Substance: FLUTICASONE PROPIONATE
  28. VERAPAMIL [Concomitant]
     Active Substance: VERAPAMIL HYDROCHLORIDE
  29. PERCOCET [Concomitant]
     Active Substance: ACETAMINOPHEN\OXYCODONE HYDROCHLORIDE

REACTIONS (6)
  - Panic disorder [None]
  - Bipolar I disorder [None]
  - Pancreatitis [None]
  - Generalised anxiety disorder [None]
  - Borderline personality disorder [None]
  - Type 2 diabetes mellitus [None]

NARRATIVE: CASE EVENT DATE: 20151001
